FAERS Safety Report 23826797 (Version 1)
Quarter: 2024Q2

REPORT INFORMATION
  Report Type: Spontaneous
  Country: FR (occurrence: None)
  Receive Date: 20240507
  Receipt Date: 20240507
  Transmission Date: 20240716
  Serious: Yes (Hospitalization)
  Sender: FDA-Public Use
  Company Number: 2024A106282

PATIENT
  Age: 70 Year
  Sex: Male

DRUGS (6)
  1. OMEPRAZOLE [Suspect]
     Active Substance: DONEPEZIL HYDROCHLORIDE\OMEPRAZOLE\OMEPRAZOLE MAGNESIUM
     Indication: Product used for unknown indication
     Dosage: ON WEDNESDAYS
     Route: 048
  2. KETOPROFEN [Suspect]
     Active Substance: KETOPROFEN
     Indication: Pain
     Dosage: 100 MG 1 MORNING AND EVENING100.0MG INTERMITTENT
     Route: 048
  3. FOLIC ACID [Suspect]
     Active Substance: FOLIC ACID
     Indication: Vitamin supplementation
     Dosage: ON WEDNESDAYS
     Route: 048
  4. METHOTREXATE [Suspect]
     Active Substance: METHOTREXATE
     Indication: Rheumatoid arthritis
     Dosage: (ON MONDAYS)
     Route: 048
     Dates: end: 2024
  5. AMOXICILLIN [Suspect]
     Active Substance: AMOXICILLIN
     Indication: Erythema migrans
     Route: 048
     Dates: start: 20240313, end: 202403
  6. CHOLECALCIFEROL [Suspect]
     Active Substance: CHOLECALCIFEROL

REACTIONS (9)
  - Persecutory delusion [Not Recovered/Not Resolved]
  - Aphasia [Not Recovered/Not Resolved]
  - Derealisation [Not Recovered/Not Resolved]
  - Mutism [Not Recovered/Not Resolved]
  - Hypercalcaemia [Unknown]
  - Hypophosphataemia [Unknown]
  - Hypoproteinaemia [Unknown]
  - Hyperglycaemia [Unknown]
  - Confusional state [Not Recovered/Not Resolved]

NARRATIVE: CASE EVENT DATE: 20240301
